FAERS Safety Report 25627899 (Version 1)
Quarter: 2025Q3

REPORT INFORMATION
  Report Type: Spontaneous
  Country: US (occurrence: US)
  Receive Date: 20250731
  Receipt Date: 20250731
  Transmission Date: 20251020
  Serious: Yes (Other)
  Sender: EMD SERONO INC
  Company Number: US-Merck Healthcare KGaA-2025037988

PATIENT
  Age: 65 Year
  Sex: Female

DRUGS (4)
  1. MAVENCLAD [Suspect]
     Active Substance: CLADRIBINE
     Indication: Multiple sclerosis
     Dates: start: 20230524, end: 20230528
  2. MAVENCLAD [Suspect]
     Active Substance: CLADRIBINE
     Dates: start: 20230620, end: 20230624
  3. MAVENCLAD [Suspect]
     Active Substance: CLADRIBINE
     Dates: start: 20240610, end: 20240614
  4. MAVENCLAD [Suspect]
     Active Substance: CLADRIBINE
     Dates: start: 20240707, end: 20240711

REACTIONS (1)
  - Lobular breast carcinoma in situ [Unknown]
